FAERS Safety Report 4328794-4 (Version None)
Quarter: 2004Q1

REPORT INFORMATION
  Report Type: 
  Country: None (occurrence: None)
  Receive Date: 20040329
  Receipt Date: 20040113
  Transmission Date: 20041129
  Serious: No
  Sender: FDA-Public Use
  Company Number: 04P-163-0247001-00

PATIENT
  Age: 42 Year
  Sex: Male

DRUGS (11)
  1. HUMIRA [Suspect]
     Indication: RHEUMATOID ARTHRITIS
     Dosage: 40 MG, 1 IN 2 WK, SUBCUTANEOUS
     Route: 058
     Dates: start: 20031214
  2. CHLORPROMAZINE HCL [Concomitant]
  3. METHOTREXATE [Concomitant]
  4. HYDROXYCHLOROQUINE PHOSPHATE [Concomitant]
  5. MELOXICAM [Concomitant]
  6. PREDNISONE [Concomitant]
  7. RISEDRONATE SODIUM [Concomitant]
  8. VICODIN [Concomitant]
  9. SERTRALINE HYDROCHLORIDE [Concomitant]
  10. MORPHINE [Concomitant]
  11. LANSOPRAZOLE [Concomitant]

REACTIONS (1)
  - INJECTION SITE BURNING [None]
